FAERS Safety Report 8849138 (Version 1)
Quarter: 2012Q4

REPORT INFORMATION
  Report Type: Spontaneous
  Country: US (occurrence: None)
  Receive Date: 20121017
  Receipt Date: 20121017
  Transmission Date: 20130627
  Serious: No
  Sender: FDA-Public Use
  Company Number: None

PATIENT
  Age: 30 Year
  Sex: Female
  Weight: 52.16 kg

DRUGS (2)
  1. ADAPALENE [Suspect]
     Indication: ACNE
     Dosage: PEA-SIZED ONCE AT NIGHT
     Route: 061
     Dates: start: 20121014, end: 20121014
  2. BENZOYL PEROXIDE [Suspect]

REACTIONS (6)
  - Eyelids pruritus [None]
  - Eyelid pain [None]
  - Eyelid irritation [None]
  - Erythema of eyelid [None]
  - Eyelid oedema [None]
  - Discomfort [None]
